FAERS Safety Report 6365938-7 (Version None)
Quarter: 2009Q3

REPORT INFORMATION
  Report Type: 
  Country: None (occurrence: None)
  Receive Date: 20090919
  Receipt Date: 20090827
  Transmission Date: 20100115
  Serious: No
  Sender: FDA-Public Use
  Company Number: US-ABBOTT-09P-163-0593951-00

PATIENT
  Sex: Male
  Weight: 136.2 kg

DRUGS (6)
  1. HUMIRA [Suspect]
     Indication: PSORIASIS
     Dates: start: 20090409, end: 20090510
  2. HUMIRA [Suspect]
     Dates: start: 20090601
  3. LUNESTA [Concomitant]
     Indication: DRUG USE FOR UNKNOWN INDICATION
  4. ORACEA [Concomitant]
     Indication: DRUG USE FOR UNKNOWN INDICATION
  5. PRISTIQ [Concomitant]
     Indication: DRUG USE FOR UNKNOWN INDICATION
  6. SIMVASTATIN [Concomitant]
     Indication: DRUG USE FOR UNKNOWN INDICATION

REACTIONS (2)
  - PSORIASIS [None]
  - RESPIRATORY TRACT INFECTION VIRAL [None]
